FAERS Safety Report 9153705 (Version 1)
Quarter: 2013Q1

REPORT INFORMATION
  Report Type: Spontaneous
  Country: DE (occurrence: None)
  Receive Date: 20130205
  Receipt Date: 20130205
  Transmission Date: 20140127
  Serious: Yes (Other)
  Sender: FDA-Public Use
  Company Number: 2013P1001546

PATIENT
  Age: 65 Year
  Sex: Female

DRUGS (4)
  1. CIPROFLOXACIN [Suspect]
  2. TAMOXIFEN [Suspect]
     Route: 048
  3. LOSARTAN [Concomitant]
  4. HCT [Concomitant]

REACTIONS (1)
  - Circulatory collapse [None]
